FAERS Safety Report 9844687 (Version 1)
Quarter: 2014Q1

REPORT INFORMATION
  Report Type: Spontaneous
  Country: IN (occurrence: None)
  Receive Date: 20140122
  Receipt Date: 20140122
  Transmission Date: 20141002
  Serious: Yes (Hospitalization)
  Sender: FDA-Public Use
  Company Number: VAL_02906_2014

PATIENT
  Age: 28 Year
  Sex: Male

DRUGS (9)
  1. BROMOCRIPTINE [Suspect]
     Indication: PRODUCT USED FOR UNKNOWN INDICATION
  2. CLOZAPINE (CLOZAPINE) [Suspect]
     Indication: SCHIZOPHRENIA, CATATONIC TYPE
  3. CLOZAPINE (CLOZAPINE) [Suspect]
     Indication: EXTRAPYRAMIDAL DISORDER
  4. CLOZAPINE (CLOZAPINE) [Suspect]
     Indication: PSYCHOTIC DISORDER
  5. TRIHEXYPHENIDYL [Suspect]
     Indication: PRODUCT USED FOR UNKNOWN INDICATION
  6. DIAZEPAM [Suspect]
     Indication: PRODUCT USED FOR UNKNOWN INDICATION
  7. VALPROIC ACID (VALPROIC ACID) [Suspect]
     Indication: PRODUCT USED FOR UNKNOWN INDICATION
  8. BACLOFEN [Suspect]
     Indication: MUSCLE RELAXANT THERAPY
  9. MAGNESIUM SULFATE [Suspect]
     Indication: PRODUCT USED FOR UNKNOWN INDICATION

REACTIONS (4)
  - Neuroleptic malignant syndrome [None]
  - Urinary incontinence [None]
  - Faecal incontinence [None]
  - Neurodegenerative disorder [None]
